FAERS Safety Report 5904543-0 (Version None)
Quarter: 2008Q3

REPORT INFORMATION
  Report Type: 
  Country: None (occurrence: None)
  Receive Date: 20080930
  Receipt Date: 20080930
  Transmission Date: 20090109
  Serious: Yes (Hospitalization)
  Sender: FDA-Public Use
  Company Number: None

PATIENT
  Age: 73 Year
  Sex: Male

DRUGS (1)
  1. ASPIRIN [Suspect]
     Dosage: 325 MG PO
     Route: 048
     Dates: end: 20080915

REACTIONS (3)
  - GASTRIC HAEMORRHAGE [None]
  - RADIATION INJURY [None]
  - RECTAL HAEMORRHAGE [None]
